FAERS Safety Report 7507636-X (Version None)
Quarter: 2011Q2

REPORT INFORMATION
  Report Type: 
  Country: None (occurrence: None)
  Receive Date: 20110527
  Receipt Date: 20110523
  Transmission Date: 20111010
  Serious: Yes (Other)
  Sender: FDA-Public Use
  Company Number: AU-BRISTOL-MYERS SQUIBB COMPANY-15193147

PATIENT
  Age: 24 Year
  Sex: Female

DRUGS (3)
  1. PEGASYS [Suspect]
     Indication: HEPATITIS D
     Route: 058
  2. ESOMEPRAZOLE MAGNESIUM [Suspect]
     Route: 048
  3. ENTECAVIR [Suspect]
     Indication: HEPATITIS B
     Route: 048
     Dates: start: 20100101

REACTIONS (2)
  - PREGNANCY [None]
  - ABORTION SPONTANEOUS [None]
